FAERS Safety Report 6255551-4 (Version None)
Quarter: 2009Q2

REPORT INFORMATION
  Report Type: 
  Country: None (occurrence: None)
  Receive Date: 20090630
  Receipt Date: 20090612
  Transmission Date: 20091009
  Serious: Yes (Life-Threatening, Hospitalization)
  Sender: FDA-Public Use
  Company Number: 0484

PATIENT
  Age: 31 Year
  Sex: Female

DRUGS (8)
  1. INDOMETHACIN [Suspect]
     Indication: PAIN
     Dosage: 75 MG/50MG/25MG
     Route: 048
     Dates: start: 20070309, end: 20070614
  2. INDOMETHACIN [Suspect]
     Indication: PAIN
     Dosage: 75 MG/50MG/25MG
     Route: 048
     Dates: start: 20070309, end: 20070701
  3. INDOMETHACIN [Suspect]
     Indication: PAIN
     Dosage: 75 MG/50MG/25MG
     Route: 048
     Dates: start: 20070615, end: 20070701
  4. ACETAMINOPHEN [Suspect]
     Route: 048
     Dates: end: 20070101
  5. SULFASALAZINE [Suspect]
     Indication: PSORIATIC ARTHROPATHY
     Dosage: 2000 MG, PO
     Route: 048
     Dates: start: 20070301, end: 20070901
  6. TETRAZEPAM [Suspect]
     Dosage: 2000 MG, PO
     Route: 048
     Dates: start: 20070309
  7. BISOPROLOL FUMARATE W/HYDROCHLOROTHIAZIDE [Concomitant]
  8. PANTOPRAZOLE SODIUM [Concomitant]

REACTIONS (1)
  - MENINGITIS NONINFECTIVE [None]
